FAERS Safety Report 17365125 (Version 1)
Quarter: 2020Q1

REPORT INFORMATION
  Report Type: Spontaneous
  Country: US (occurrence: US)
  Receive Date: 20200204
  Receipt Date: 20200204
  Transmission Date: 20200409
  Serious: No
  Sender: FDA-Public Use
  Company Number: US-AMGEN-USASP2020016898

PATIENT
  Age: 39 Year
  Sex: Female

DRUGS (7)
  1. EPOETIN ALFA [Suspect]
     Active Substance: ERYTHROPOIETIN
     Indication: BLOOD LOSS ANAEMIA
     Dosage: UNK (600 UNITS/KG/DAY)
     Route: 042
  2. FOLATE [Concomitant]
     Active Substance: FOLATE SODIUM
     Dosage: UNK
     Route: 051
  3. IRON DEXTRAN [Concomitant]
     Active Substance: IRON DEXTRAN
     Dosage: UNK
     Route: 042
  4. MIDAZOLAM HYDROCHLORIDE. [Concomitant]
     Active Substance: MIDAZOLAM HYDROCHLORIDE
     Indication: ANXIETY
     Dosage: UNK
  5. VITAMIN B12 [Concomitant]
     Active Substance: CYANOCOBALAMIN
     Dosage: UNK
     Route: 051
  6. HETASTARCH. [Concomitant]
     Active Substance: HETASTARCH
     Dosage: UNK (6%)
  7. MORPHINE [Concomitant]
     Active Substance: MORPHINE
     Indication: PAIN
     Dosage: UNK

REACTIONS (1)
  - Off label use [Unknown]
